FAERS Safety Report 22655672 (Version 1)
Quarter: 2023Q2

REPORT INFORMATION
  Report Type: Spontaneous
  Country: GB (occurrence: GB)
  Receive Date: 20230629
  Receipt Date: 20230629
  Transmission Date: 20230721
  Serious: Yes (Death)
  Sender: FDA-Public Use
  Company Number: GB-MEDAC-2023000931

PATIENT

DRUGS (2)
  1. CYCLOPHOSPHAMIDE [Suspect]
     Active Substance: CYCLOPHOSPHAMIDE
     Dosage: 3 CYCLES
     Route: 064
  2. DOXORUBICIN [Suspect]
     Active Substance: DOXORUBICIN
     Dosage: 3 CYCLES
     Route: 064

REACTIONS (5)
  - Maternal exposure during pregnancy [Fatal]
  - Premature baby [Fatal]
  - Death neonatal [Fatal]
  - Immunosuppression [Fatal]
  - Neonatal infection [Fatal]

NARRATIVE: CASE EVENT DATE: 20150101
